FAERS Safety Report 15694041 (Version 13)
Quarter: 2020Q3

REPORT INFORMATION
  Report Type: Report from Study
  Country: FR (occurrence: FR)
  Receive Date: 20181206
  Receipt Date: 20200916
  Transmission Date: 20201102
  Serious: Yes (Hospitalization, Other)
  Sender: FDA-Public Use
  Company Number: FR-EISAI MEDICAL RESEARCH-EC-2018-048619

PATIENT
  Age: 55 Year
  Sex: Male
  Weight: 84 kg

DRUGS (20)
  1. LENVATINIB [Suspect]
     Active Substance: LENVATINIB
     Route: 048
     Dates: start: 20191017, end: 20200217
  2. PEMBROLIZUMAB. [Suspect]
     Active Substance: PEMBROLIZUMAB
     Indication: HEPATOCELLULAR CARCINOMA
     Route: 041
     Dates: start: 20181115, end: 20181206
  3. PEMBROLIZUMAB. [Suspect]
     Active Substance: PEMBROLIZUMAB
     Route: 041
     Dates: start: 20191017, end: 20200217
  4. NOVORAPID [Concomitant]
     Active Substance: INSULIN ASPART
  5. DOLIPRANE [Concomitant]
     Active Substance: ACETAMINOPHEN
  6. PEMBROLIZUMAB. [Suspect]
     Active Substance: PEMBROLIZUMAB
     Route: 041
     Dates: start: 20190523, end: 2019
  7. LANTUS [Concomitant]
     Active Substance: INSULIN GLARGINE
  8. TIORFAN [Concomitant]
     Active Substance: RACECADOTRIL
  9. LENVATINIB [Suspect]
     Active Substance: LENVATINIB
     Route: 048
     Dates: start: 20181220, end: 20190218
  10. LENVATINIB [Suspect]
     Active Substance: LENVATINIB
     Indication: HEPATOCELLULAR CARCINOMA
     Route: 048
     Dates: start: 20181115, end: 20181121
  11. LENVATINIB [Suspect]
     Active Substance: LENVATINIB
     Route: 048
     Dates: start: 20181122, end: 20181128
  12. LENVATINIB [Suspect]
     Active Substance: LENVATINIB
     Route: 048
     Dates: start: 20190321, end: 20191008
  13. PEMBROLIZUMAB. [Suspect]
     Active Substance: PEMBROLIZUMAB
     Route: 041
     Dates: start: 2020, end: 20200910
  14. LENVATINIB [Suspect]
     Active Substance: LENVATINIB
     Route: 048
     Dates: start: 20200820, end: 20200910
  15. ACUPAN [Concomitant]
     Active Substance: NEFOPAM HYDROCHLORIDE
  16. SMECTA [Concomitant]
     Active Substance: MONTMORILLONITE
  17. LENVATINIB [Suspect]
     Active Substance: LENVATINIB
     Route: 048
     Dates: start: 2020, end: 20200817
  18. PEMBROLIZUMAB. [Suspect]
     Active Substance: PEMBROLIZUMAB
     Route: 041
     Dates: start: 20181227, end: 20190228
  19. DUPHALAC [Concomitant]
     Active Substance: LACTULOSE
  20. TIXTAR [Concomitant]
     Active Substance: RIFAXIMIN

REACTIONS (6)
  - Intra-abdominal fluid collection [Recovered/Resolved]
  - Haemoptysis [Recovered/Resolved]
  - Pyrexia [Recovered/Resolved]
  - Blood bilirubin increased [Not Recovered/Not Resolved]
  - Hepatic encephalopathy [Recovered/Resolved]
  - Asthenia [Recovered/Resolved]

NARRATIVE: CASE EVENT DATE: 20181129
